FAERS Safety Report 4700382-7 (Version None)
Quarter: 2005Q2

REPORT INFORMATION
  Report Type: 
  Country: None (occurrence: None)
  Receive Date: 20050207
  Receipt Date: 20050207
  Transmission Date: 20051028
  Serious: No
  Sender: FDA-Public Use
  Company Number: None

PATIENT
  Age: 78 Year
  Sex: Female
  Weight: 58.0604 kg

DRUGS (2)
  1. DARVOCET-N 100 [Suspect]
     Indication: BACK PAIN
     Dosage: ONE PO BID PRN
     Route: 048
  2. DARVOCET-N 100 [Suspect]
     Indication: SPINAL COLUMN STENOSIS
     Dosage: ONE PO BID PRN
     Route: 048

REACTIONS (2)
  - INADEQUATE ANALGESIA [None]
  - THERAPEUTIC RESPONSE UNEXPECTED WITH DRUG SUBSTITUTION [None]
